FAERS Safety Report 11749401 (Version 2)
Quarter: 2016Q1

REPORT INFORMATION
  Report Type: Spontaneous
  Country: US (occurrence: US)
  Receive Date: 20151118
  Receipt Date: 20160108
  Transmission Date: 20160525
  Serious: No
  Sender: FDA-Public Use
  Company Number: US-PFIZER INC-2015375594

PATIENT
  Age: 47 Year
  Sex: Female
  Weight: 66 kg

DRUGS (1)
  1. ADVIL [Suspect]
     Active Substance: IBUPROFEN
     Indication: TOOTHACHE
     Dosage: 800 MG, 1X/DAY, FOUR (200MG)
     Route: 048
     Dates: start: 20151102

REACTIONS (7)
  - Dysphagia [Not Recovered/Not Resolved]
  - Product physical issue [Unknown]
  - Product use issue [Unknown]
  - Throat irritation [Unknown]
  - Product difficult to swallow [Not Recovered/Not Resolved]
  - Poor quality drug administered [Unknown]
  - Cough [Unknown]

NARRATIVE: CASE EVENT DATE: 20151102
